FAERS Safety Report 9835322 (Version 2)
Quarter: 2014Q1

REPORT INFORMATION
  Report Type: Report from Study
  Country: CA (occurrence: CA)
  Receive Date: 20140122
  Receipt Date: 20140130
  Transmission Date: 20141002
  Serious: Yes (Death)
  Sender: FDA-Public Use
  Company Number: CA-PFIZER INC-2014016961

PATIENT
  Age: 56 Year
  Sex: Male
  Weight: 64.8 kg

DRUGS (4)
  1. AXITINIB [Suspect]
     Indication: HEPATOCELLULAR CARCINOMA
     Dosage: 5 MG, 2X/DAY
     Route: 048
     Dates: start: 20131001, end: 20131230
  2. TYLENOL W/CODEINE NO. 3 [Concomitant]
     Indication: PAIN
     Dosage: UNK
     Dates: start: 201306
  3. MORPHINE SULFATE [Concomitant]
     Indication: PAIN
     Dosage: UNK
     Dates: start: 20131029
  4. DEXAMETHASONE [Concomitant]
     Indication: FATIGUE
     Dosage: UNK
     Dates: start: 20140107

REACTIONS (2)
  - Disease progression [Fatal]
  - Hepatocellular carcinoma [Fatal]
